FAERS Safety Report 25860666 (Version 1)
Quarter: 2025Q3

REPORT INFORMATION
  Report Type: Spontaneous
  Country: US (occurrence: None)
  Receive Date: 20250926
  Receipt Date: 20250926
  Transmission Date: 20251021
  Serious: Yes (Hospitalization)
  Sender: FDA-CTU
  Company Number: None

PATIENT
  Sex: Male

DRUGS (3)
  1. COLISTIMETHATE SODIUM [Suspect]
     Active Substance: COLISTIMETHATE SODIUM
     Indication: Cystic fibrosis
     Dosage: 150 MG 3 TIMES A DAY RESPIRATORY (INHALATION)
     Route: 055
     Dates: start: 20230407
  2. TOBRAMYCIN [Suspect]
     Active Substance: TOBRAMYCIN
     Indication: Cystic fibrosis
     Dosage: 300 MG TWICE A DAY RESPIRATORY (INHALATION)?
     Route: 055
     Dates: start: 20221116
  3. STERILE WATER SDV [Concomitant]

REACTIONS (1)
  - Osteomyelitis [None]
